FAERS Safety Report 22324971 (Version 1)
Quarter: 2023Q2

REPORT INFORMATION
  Report Type: Spontaneous
  Country: US (occurrence: None)
  Receive Date: 20230513
  Receipt Date: 20230513
  Transmission Date: 20230722
  Serious: Yes (Other)
  Sender: FDA-Public Use
  Company Number: None

PATIENT
  Age: 67 Year
  Sex: Female
  Weight: 49.05 kg

DRUGS (7)
  1. RECLAST [Suspect]
     Active Substance: ZOLEDRONIC ACID
     Indication: Osteoporosis
     Dates: start: 20220503
  2. LEVOTHYROXINE [Concomitant]
     Active Substance: LEVOTHYROXINE
  3. AZELASTINE [Concomitant]
     Active Substance: AZELASTINE
  4. DIETARY SUPPLEMENT [Concomitant]
     Active Substance: DIETARY SUPPLEMENT
  5. CALCIUM [Concomitant]
     Active Substance: CALCIUM
  6. multi-vitamin/mineral [Concomitant]
  7. CHONDROITIN SULFATE (BOVINE)\GLUCOSAMINE HYDROCHLORIDE [Concomitant]
     Active Substance: CHONDROITIN SULFATE (BOVINE)\GLUCOSAMINE HYDROCHLORIDE

REACTIONS (8)
  - Chills [None]
  - Pyrexia [None]
  - Headache [None]
  - Drug ineffective [None]
  - Spondylitis [None]
  - Arthritis [None]
  - Joint swelling [None]
  - Musculoskeletal stiffness [None]

NARRATIVE: CASE EVENT DATE: 20220504
